FAERS Safety Report 8564538-8 (Version None)
Quarter: 2012Q3

REPORT INFORMATION
  Report Type: 
  Country: None (occurrence: None)
  Receive Date: 20120803
  Receipt Date: 19830524
  Transmission Date: 20120928
  Serious: No
  Sender: FDA-Public Use
  Company Number: US-009507513-83060034

PATIENT

DRUGS (2)
  1. XANAX [Concomitant]
     Dosage: 0.5 MG, UNK
     Dates: start: 19830413, end: 19830428
  2. ELAVIL [Suspect]
     Indication: DEPRESSION
     Dosage: 50 MG, HS
     Route: 048
     Dates: start: 19830413, end: 19830428

REACTIONS (1)
  - ALOPECIA [None]
